FAERS Safety Report 9239473 (Version 5)
Quarter: 2016Q4

REPORT INFORMATION
  Report Type: Report from Study
  Country: JP (occurrence: JP)
  Receive Date: 20130418
  Receipt Date: 20161121
  Transmission Date: 20170207
  Serious: Yes (Hospitalization)
  Sender: FDA-Public Use
  Company Number: JP-PFIZER INC-2013107326

PATIENT
  Age: 47 Year
  Sex: Female
  Weight: 32.8 kg

DRUGS (8)
  1. SIROLIMUS. [Suspect]
     Active Substance: SIROLIMUS
     Dosage: 2 MG, 1X/DAY
     Route: 048
     Dates: start: 20130207, end: 20130213
  2. VESICARE [Concomitant]
     Active Substance: SOLIFENACIN SUCCINATE
     Indication: NEUROGENIC BLADDER
     Dosage: UNK
     Route: 048
     Dates: start: 201112
  3. SIROLIMUS. [Suspect]
     Active Substance: SIROLIMUS
     Dosage: 1 MG, 1X/DAY
     Route: 048
     Dates: start: 20130214
  4. SIROLIMUS. [Suspect]
     Active Substance: SIROLIMUS
     Indication: LYMPHANGIOLEIOMYOMATOSIS
     Dosage: 2 MG, 1X/DAY
     Route: 048
     Dates: start: 20121214, end: 20130103
  5. TULOBUTEROL [Concomitant]
     Active Substance: TULOBUTEROL
     Indication: LYMPHANGIOLEIOMYOMATOSIS
     Dosage: UNK
     Route: 062
     Dates: start: 20130402
  6. SIROLIMUS. [Suspect]
     Active Substance: SIROLIMUS
     Dosage: 1 MG, 1X/DAY
     Route: 048
     Dates: start: 20130104, end: 20130206
  7. SPIRIVA [Concomitant]
     Active Substance: TIOTROPIUM BROMIDE MONOHYDRATE
     Indication: LYMPHANGIOLEIOMYOMATOSIS
     Dosage: UNK
     Route: 055
     Dates: start: 201102
  8. ONBREZ [Concomitant]
     Active Substance: INDACATEROL
     Indication: LYMPHANGIOLEIOMYOMATOSIS
     Dosage: UNK
     Route: 055
     Dates: start: 20121218

REACTIONS (2)
  - Dyspnoea [Recovered/Resolved]
  - Chest pain [Recovered/Resolved]

NARRATIVE: CASE EVENT DATE: 20130319
